FAERS Safety Report 6880949-0 (Version None)
Quarter: 2010Q2

REPORT INFORMATION
  Report Type: 
  Country: None (occurrence: None)
  Receive Date: 20100630
  Receipt Date: 20100318
  Transmission Date: 20101027
  Serious: No
  Sender: FDA-Public Use
  Company Number: 1000012582

PATIENT
  Sex: Female

DRUGS (2)
  1. BYSTOLIC [Suspect]
     Dosage: 5 MG 95 MG,1 IN 1 D), ORAL
     Route: 048
  2. BYSTOLIC [Suspect]
     Dosage: 10 MG (10 MG,1 IN 1 D), ORAL
     Route: 048

REACTIONS (2)
  - IMPAIRED GASTRIC EMPTYING [None]
  - IRRITABLE BOWEL SYNDROME [None]
